FAERS Safety Report 5004568-6 (Version None)
Quarter: 2006Q2

REPORT INFORMATION
  Report Type: 
  Country: None (occurrence: None)
  Receive Date: 20060516
  Receipt Date: 20060516
  Transmission Date: 20061013
  Serious: Yes (Other)
  Sender: FDA-Public Use
  Company Number: None

PATIENT
  Age: 58 Year
  Sex: Female
  Weight: 75.2971 kg

DRUGS (1)
  1. LIPITOR [Suspect]
     Indication: BLOOD CHOLESTEROL INCREASED
     Dosage: DAILY
     Dates: start: 19980901, end: 20051229

REACTIONS (11)
  - AMYOTROPHIC LATERAL SCLEROSIS [None]
  - ANKLE FRACTURE [None]
  - BALANCE DISORDER [None]
  - DYSARTHRIA [None]
  - DYSGRAPHIA [None]
  - FATIGUE [None]
  - INSOMNIA [None]
  - MUSCLE DISORDER [None]
  - MUSCULAR WEAKNESS [None]
  - MUSCULOSKELETAL STIFFNESS [None]
  - MYALGIA [None]
